FAERS Safety Report 8376971-8 (Version None)
Quarter: 2012Q2

REPORT INFORMATION
  Report Type: 
  Country: None (occurrence: None)
  Receive Date: 20120522
  Receipt Date: 20120510
  Transmission Date: 20120825
  Serious: Yes (Other)
  Sender: FDA-Public Use
  Company Number: DE-ROCHE-1069880

PATIENT
  Age: 70 Year
  Sex: Male

DRUGS (3)
  1. LUCENTIS [Suspect]
     Route: 050
     Dates: start: 20120130, end: 20120130
  2. LUCENTIS [Suspect]
     Indication: MACULAR OEDEMA
     Route: 050
  3. LUCENTIS [Suspect]
     Route: 050
     Dates: start: 20120102

REACTIONS (1)
  - VISUAL ACUITY REDUCED [None]
